FAERS Safety Report 20116173 (Version 1)
Quarter: 2021Q4

REPORT INFORMATION
  Report Type: Spontaneous
  Country: ES (occurrence: ES)
  Receive Date: 20211126
  Receipt Date: 20211126
  Transmission Date: 20220304
  Serious: Yes (Other)
  Sender: FDA-Public Use
  Company Number: ES-AEMPS-1048648

PATIENT
  Age: 62 Year
  Sex: Female

DRUGS (4)
  1. FLUCONAZOLE [Suspect]
     Active Substance: FLUCONAZOLE
     Indication: Pyelonephritis acute
     Dosage: 200 MILLIGRAM (TOTAL)
     Route: 048
     Dates: start: 20210916, end: 20210916
  2. AMOXICILLIN\CLAVULANATE POTASSIUM [Suspect]
     Active Substance: AMOXICILLIN\CLAVULANATE POTASSIUM
     Indication: Urinary tract infection
     Dosage: 1 DOSAGE FORM, 3 TIMES A DAY
     Route: 048
     Dates: start: 20210913, end: 20210916
  3. CEFTRIAXONE SODIUM [Suspect]
     Active Substance: CEFTRIAXONE SODIUM
     Indication: Pyelonephritis
     Dosage: 1 GRAM, ONCE A DAY
     Route: 042
     Dates: start: 20210916, end: 20210922
  4. MONUROL [Suspect]
     Active Substance: FOSFOMYCIN TROMETHAMINE
     Indication: Urinary tract infection
     Dosage: 3 GRAM (72 HOUR)
     Route: 048
     Dates: start: 20210909, end: 20210912

REACTIONS (1)
  - Hepatitis cholestatic [Recovered/Resolved]

NARRATIVE: CASE EVENT DATE: 20210917
